FAERS Safety Report 14931105 (Version 3)
Quarter: 2018Q3

REPORT INFORMATION
  Report Type: Spontaneous
  Country: GB (occurrence: GB)
  Receive Date: 20180524
  Receipt Date: 20180802
  Transmission Date: 20181010
  Serious: Yes (Congenital Anomaly, Other)
  Sender: FDA-Public Use
  Company Number: GB-TEVA-2018-GB-894507

PATIENT
  Age: 69 Year
  Sex: Male
  Weight: 105.22 kg

DRUGS (1)
  1. DOXAZOSIN [Suspect]
     Active Substance: DOXAZOSIN\DOXAZOSIN MESYLATE
     Indication: HYPERTENSION
     Route: 048
     Dates: start: 20180222, end: 20180309

REACTIONS (3)
  - Testicular swelling [Not Recovered/Not Resolved]
  - Epididymal cyst [Unknown]
  - Hydrocele [Unknown]

NARRATIVE: CASE EVENT DATE: 20180309
